FAERS Safety Report 16074342 (Version 1)
Quarter: 2019Q1

REPORT INFORMATION
  Report Type: Spontaneous
  Country: US (occurrence: US)
  Receive Date: 20190314
  Receipt Date: 20190314
  Transmission Date: 20190418
  Serious: No
  Sender: FDA-Public Use
  Company Number: US-HISAMITSU-2019-US-001759

PATIENT
  Age: 60 Year
  Sex: Male
  Weight: 124.29 kg

DRUGS (1)
  1. SALONPAS ARTHRITIS PAIN [Suspect]
     Active Substance: MENTHOL\METHYL SALICYLATE
     Indication: ANALGESIC THERAPY
     Dosage: 1 PATCH TO SHOULDER BLADE AND 1 PATCH TO CALF OF LEG
     Route: 061
     Dates: start: 20190122, end: 20190122

REACTIONS (2)
  - Application site rash [Not Recovered/Not Resolved]
  - Application site pain [Recovered/Resolved]

NARRATIVE: CASE EVENT DATE: 20180122
